FAERS Safety Report 8784818 (Version 1)
Quarter: 2012Q4

REPORT INFORMATION
  Report Type: 
  Country: CN (occurrence: CN)
  Receive Date: 20120914
  Receipt Date: 20120914
  Transmission Date: 20130627
  Serious: Yes (Other)
  Sender: FDA-Public Use
  Company Number: CN-BRISTOL-MYERS SQUIBB COMPANY-16951063

PATIENT
  Age: 75 Year
  Sex: Male
  Weight: 63 kg

DRUGS (1)
  1. APROVEL TABS [Suspect]
     Indication: HYPERTENSIVE NEPHROPATHY
     Route: 048
     Dates: start: 20100503, end: 20100506

REACTIONS (2)
  - Henoch-Schonlein purpura [Recovering/Resolving]
  - Palpitations [Recovering/Resolving]
